FAERS Safety Report 15159488 (Version 1)
Quarter: 2018Q3

REPORT INFORMATION
  Report Type: Spontaneous
  Country: AU (occurrence: AU)
  Receive Date: 20180718
  Receipt Date: 20180718
  Transmission Date: 20181010
  Serious: Yes (Other)
  Sender: FDA-Public Use
  Company Number: AU-009507513-1807AUS005790

PATIENT
  Sex: Female
  Weight: 56 kg

DRUGS (1)
  1. BELSOMRA [Suspect]
     Active Substance: SUVOREXANT
     Dosage: 20 MG, UNK

REACTIONS (7)
  - Poor quality sleep [Unknown]
  - Somnolence [Unknown]
  - Dizziness [Unknown]
  - Paralysis [Unknown]
  - Headache [Unknown]
  - Nightmare [Unknown]
  - Nausea [Unknown]
